FAERS Safety Report 8439021-0 (Version None)
Quarter: 2012Q2

REPORT INFORMATION
  Report Type: 
  Country: None (occurrence: None)
  Receive Date: 20120608
  Receipt Date: 20120531
  Transmission Date: 20120825
  Serious: Yes (Other)
  Sender: FDA-Public Use
  Company Number: 2012131025

PATIENT
  Age: 68 Year
  Sex: Male
  Weight: 73 kg

DRUGS (3)
  1. FRAGMIN [Suspect]
     Indication: POSTOPERATIVE CARE
     Dosage: 5000 IU, DAILY, SUBCUTANEOUS
     Route: 058
     Dates: start: 20120501, end: 20120512
  2. PERINDOPRIL ERBUMINE [Concomitant]
  3. BECONASE [Concomitant]

REACTIONS (3)
  - THROAT TIGHTNESS [None]
  - URTICARIA [None]
  - CHEST DISCOMFORT [None]
